FAERS Safety Report 24576553 (Version 2)
Quarter: 2025Q3

REPORT INFORMATION
  Report Type: Report from Study
  Country: US (occurrence: US)
  Receive Date: 20241104
  Receipt Date: 20250809
  Transmission Date: 20251020
  Serious: Yes (Hospitalization, Other)
  Sender: ALEXION PHARMACEUTICALS
  Company Number: US-ASTRAZENECA-202410USA018801US

PATIENT
  Sex: Female

DRUGS (13)
  1. OSIMERTINIB [Suspect]
     Active Substance: OSIMERTINIB
     Indication: Lung carcinoma cell type unspecified stage 0
     Dosage: 40 MILLIGRAM, QD
  2. ASPIRIN [Concomitant]
     Active Substance: ASPIRIN
  3. LIDOCAINE [Concomitant]
     Active Substance: LIDOCAINE
  4. IMODIUM A-D [Concomitant]
     Active Substance: LOPERAMIDE HYDROCHLORIDE
  5. CORTIZONE 10 [Concomitant]
     Active Substance: HYDROCORTISONE
  6. XULTOPHY 100/3.6 [Concomitant]
     Active Substance: INSULIN DEGLUDEC\LIRAGLUTIDE
  7. AMLODIPINE [Concomitant]
     Active Substance: AMLODIPINE BESYLATE
  8. ATORVASTATIN [Concomitant]
     Active Substance: ATORVASTATIN
  9. CARVEDILOL [Concomitant]
     Active Substance: CARVEDILOL
  10. FAMOTIDINE [Concomitant]
     Active Substance: FAMOTIDINE
  11. LETROZOLE [Concomitant]
     Active Substance: LETROZOLE
  12. LEVOTHYROXINE [Concomitant]
     Active Substance: LEVOTHYROXINE
  13. PANTOPRAZOLE [Concomitant]
     Active Substance: PANTOPRAZOLE

REACTIONS (2)
  - Dyspnoea [Unknown]
  - Diabetes mellitus [Unknown]
